FAERS Safety Report 4885702-5 (Version None)
Quarter: 2005Q4

REPORT INFORMATION
  Report Type: 
  Country: None (occurrence: None)
  Receive Date: 20051220
  Receipt Date: 20050324
  Transmission Date: 20060501
  Serious: Yes (Death)
  Sender: FDA-Public Use
  Company Number: HQWYE352124MAR05

PATIENT
  Age: 51 Year
  Sex: Female
  Weight: 101.7 kg

DRUGS (18)
  1. EFFEXOR XR [Suspect]
     Indication: MAJOR DEPRESSION
     Dosage: ^LARGE NUMBER OF PILLS^ (OVERDOSE AMOUNT), ORAL
     Route: 048
     Dates: start: 20041223, end: 20041223
  2. ULTRAM [Suspect]
     Dosage: (OVERDOSE AMOUNT) ORAL
     Route: 048
     Dates: start: 20041223, end: 20041223
  3. VICODIN [Suspect]
     Dosage: HIGH LEVELS (OVERDOSE AMOUNT)
     Dates: start: 20041223, end: 20041223
  4. WELLBUTRIN XL [Suspect]
     Indication: MAJOR DEPRESSION
     Dosage: OVERDOSE AMOUNT UNKNOWN, ORAL
     Route: 048
     Dates: start: 20041223, end: 20041223
  5. NEXIUM [Concomitant]
  6. PHENERGAN [Concomitant]
  7. TRICOR [Concomitant]
  8. URECHOLINE [Concomitant]
  9. ESTRADIOL [Concomitant]
  10. LEVOTHROID [Concomitant]
  11. AMBIEN [Concomitant]
  12. GLUCOTROL [Concomitant]
  13. TRILEPTAL [Concomitant]
  14. CLARITIN [Concomitant]
  15. LISINOPRIL [Concomitant]
  16. KLONOPIN [Concomitant]
  17. SKELAXIN [Concomitant]
  18. AVANDIA [Concomitant]

REACTIONS (2)
  - COMPLETED SUICIDE [None]
  - INTENTIONAL OVERDOSE [None]
